FAERS Safety Report 23154345 (Version 2)
Quarter: 2023Q4

REPORT INFORMATION
  Report Type: Spontaneous
  Country: US (occurrence: US)
  Receive Date: 20231107
  Receipt Date: 20231116
  Transmission Date: 20240110
  Serious: Yes (Death)
  Sender: FDA-Public Use
  Company Number: US-ABBVIE-5484852

PATIENT
  Sex: Male

DRUGS (1)
  1. IMBRUVICA [Suspect]
     Active Substance: IBRUTINIB
     Indication: Product used for unknown indication
     Dosage: TWO TABLETS ALTERNATING WITH ONE TAB QOD.
     Route: 048
     Dates: start: 20180711

REACTIONS (1)
  - Death [Fatal]
